FAERS Safety Report 11760695 (Version 1)
Quarter: 2015Q4

REPORT INFORMATION
  Report Type: Spontaneous
  Country: US (occurrence: US)
  Receive Date: 20151120
  Receipt Date: 20151120
  Transmission Date: 20160304
  Serious: No
  Sender: FDA-Public Use
  Company Number: US-ELI_LILLY_AND_COMPANY-US201212005196

PATIENT
  Age: 82 Year
  Sex: Female

DRUGS (2)
  1. FORTEO [Suspect]
     Active Substance: TERIPARATIDE
     Indication: OSTEOPOROSIS
  2. FORTEO [Suspect]
     Active Substance: TERIPARATIDE

REACTIONS (8)
  - Pain [Unknown]
  - Dropped head syndrome [Not Recovered/Not Resolved]
  - Mood altered [Unknown]
  - Nervousness [Unknown]
  - Emotional distress [Unknown]
  - Drug dose omission [Not Recovered/Not Resolved]
  - Depressed mood [Unknown]
  - Anger [Unknown]

NARRATIVE: CASE EVENT DATE: 201212
